FAERS Safety Report 7741689-9 (Version None)
Quarter: 2011Q3

REPORT INFORMATION
  Report Type: 
  Country: None (occurrence: None)
  Receive Date: 20110912
  Receipt Date: 20110902
  Transmission Date: 20111222
  Serious: Yes (Hospitalization)
  Sender: FDA-Public Use
  Company Number: US-BIOGENIDEC-2011BI011114

PATIENT
  Age: 37 Year
  Sex: Female

DRUGS (2)
  1. MEDICATION (NOS) [Concomitant]
     Indication: HERPES ZOSTER
  2. TYSABRI [Suspect]
     Indication: MULTIPLE SCLEROSIS
     Route: 042
     Dates: start: 20081029

REACTIONS (5)
  - VICTIM OF ABUSE [None]
  - HERPES ZOSTER [None]
  - MUSCLE SPASMS [None]
  - ASTHENIA [None]
  - STRESS [None]
